FAERS Safety Report 7244278-8 (Version None)
Quarter: 2011Q1

REPORT INFORMATION
  Report Type: 
  Country: None (occurrence: None)
  Receive Date: 20110125
  Receipt Date: 20101222
  Transmission Date: 20110831
  Serious: Yes (Other)
  Sender: FDA-Public Use
  Company Number: IE-US-EMD SERONO, INC.-7033059

PATIENT
  Sex: Female

DRUGS (1)
  1. REBIF [Suspect]
     Indication: RELAPSING-REMITTING MULTIPLE SCLEROSIS
     Dates: start: 20050418

REACTIONS (5)
  - BACK PAIN [None]
  - NEPHROLITHIASIS [None]
  - HYPOAESTHESIA [None]
  - PERIPHERAL COLDNESS [None]
  - FEELING COLD [None]
